FAERS Safety Report 18170732 (Version 1)
Quarter: 2020Q3

REPORT INFORMATION
  Report Type: Spontaneous
  Country: US (occurrence: US)
  Receive Date: 20200819
  Receipt Date: 20200819
  Transmission Date: 20201103
  Serious: No
  Sender: FDA-Public Use
  Company Number: US-BAYER-2020-166632

PATIENT
  Age: 53 Year
  Sex: Male

DRUGS (2)
  1. MAVYRET [Suspect]
     Active Substance: GLECAPREVIR\PIBRENTASVIR
     Indication: HEPATITIS C
     Dosage: UNK
     Route: 048
     Dates: start: 202002, end: 202004
  2. NEXAVAR [Suspect]
     Active Substance: SORAFENIB

REACTIONS (11)
  - Abdominal pain upper [None]
  - Cough [None]
  - Rhinorrhoea [None]
  - Dyspepsia [None]
  - Nasopharyngitis [None]
  - Petechiae [None]
  - Influenza like illness [None]
  - Gingival bleeding [None]
  - Rash [None]
  - Epistaxis [None]
  - Headache [None]

NARRATIVE: CASE EVENT DATE: 2020
